FAERS Safety Report 11890618 (Version 2)
Quarter: 2016Q1

REPORT INFORMATION
  Report Type: Spontaneous
  Country: GB (occurrence: GB)
  Receive Date: 20160105
  Receipt Date: 20160119
  Transmission Date: 20160526
  Serious: Yes (Other)
  Sender: FDA-Public Use
  Company Number: PHHY2015GB169874

PATIENT
  Age: 68 Year
  Sex: Female

DRUGS (1)
  1. CLARITHROMYCIN SANDOZ [Suspect]
     Active Substance: CLARITHROMYCIN
     Indication: OROPHARYNGEAL PAIN
     Dosage: 500 MG, BID
     Route: 048

REACTIONS (10)
  - Neck pain [Unknown]
  - Local swelling [Unknown]
  - Dysgeusia [Unknown]
  - Headache [Unknown]
  - Tongue ulceration [Unknown]
  - Pyrexia [Unknown]
  - Swollen tongue [Unknown]
  - Vision blurred [Unknown]
  - Syncope [Unknown]
  - Dyspnoea [Unknown]
